FAERS Safety Report 4987722-9 (Version None)
Quarter: 2006Q2

REPORT INFORMATION
  Report Type: 
  Country: None (occurrence: None)
  Receive Date: 20060428
  Receipt Date: 20060428
  Transmission Date: 20061013
  Serious: Yes (Other)
  Sender: FDA-Public Use
  Company Number: None

PATIENT
  Age: 73 Year
  Sex: Male
  Weight: 111.1313 kg

DRUGS (1)
  1. CLONAZEPAM [Suspect]
     Indication: RESTLESS LEGS SYNDROME
     Dosage: 1.5 MG EVERY NIGHT PO
     Route: 048
     Dates: start: 20060423, end: 20060427

REACTIONS (6)
  - CONDITION AGGRAVATED [None]
  - DRUG INEFFECTIVE [None]
  - MUSCLE TWITCHING [None]
  - PHARMACEUTICAL PRODUCT COMPLAINT [None]
  - RESTLESS LEGS SYNDROME [None]
  - THERAPEUTIC RESPONSE UNEXPECTED WITH DRUG SUBSTITUTION [None]
